FAERS Safety Report 16126105 (Version 2)
Quarter: 2019Q2

REPORT INFORMATION
  Report Type: Spontaneous
  Country: US (occurrence: US)
  Receive Date: 20190328
  Receipt Date: 20190524
  Transmission Date: 20190711
  Serious: Yes (Other)
  Sender: FDA-Public Use
  Company Number: US-PFIZER INC-2019127684

PATIENT
  Age: 73 Year
  Sex: Female

DRUGS (1)
  1. CHANTIX [Suspect]
     Active Substance: VARENICLINE TARTRATE
     Indication: SMOKING CESSATION THERAPY
     Dosage: UNK UNK, 2X/DAY (^10 MG^ TWICE DAILY)
     Dates: start: 201810, end: 201903

REACTIONS (4)
  - Increased appetite [Unknown]
  - Musculoskeletal pain [Unknown]
  - Nausea [Unknown]
  - Myocardial infarction [Unknown]
